FAERS Safety Report 5070214-9 (Version None)
Quarter: 2006Q3

REPORT INFORMATION
  Report Type: 
  Country: None (occurrence: None)
  Receive Date: 20060731
  Receipt Date: 20060721
  Transmission Date: 20061208
  Serious: Yes (Life-Threatening, Hospitalization)
  Sender: FDA-Public Use
  Company Number: TR-2005-007580

PATIENT
  Age: 75 Year
  Sex: Female

DRUGS (7)
  1. ULTRAVIST 370 [Suspect]
     Dosage: 1 DOSE, INTRA-ARTERIAL
     Route: 013
     Dates: start: 20050511, end: 20050511
  2. NORVASC [Concomitant]
  3. CORASPIN (ACETYLSALICYLIC ACID) [Concomitant]
  4. BELOC [Concomitant]
  5. PLAVIX [Concomitant]
  6. LIPITOR [Concomitant]
  7. VASTAREL (TRIMETAZIDINE HYDROCHLORIDE) [Concomitant]

REACTIONS (1)
  - DIPLOPIA [None]
